FAERS Safety Report 8429924-5 (Version None)
Quarter: 2012Q2

REPORT INFORMATION
  Report Type: 
  Country: None (occurrence: None)
  Receive Date: 20120612
  Receipt Date: 20120529
  Transmission Date: 20120825
  Serious: Yes (Other)
  Sender: FDA-Public Use
  Company Number: TR-WATSON-2012-09508

PATIENT
  Age: 51 Year
  Sex: Female

DRUGS (2)
  1. DULOXETIME HYDROCHLORIDE [Suspect]
     Indication: PANIC DISORDER
     Dosage: 60 MG, DAILY
  2. CIPROFLOXACIN HCL [Suspect]
     Indication: LOWER URINARY TRACT SYMPTOMS
     Dosage: 1500 MG, DAILY
     Route: 065

REACTIONS (4)
  - HEPATIC ENZYME ABNORMAL [None]
  - SEROTONIN SYNDROME [None]
  - POTENTIATING DRUG INTERACTION [None]
  - DRUG LEVEL INCREASED [None]
